FAERS Safety Report 5044842-0 (Version None)
Quarter: 2006Q2

REPORT INFORMATION
  Report Type: 
  Country: None (occurrence: None)
  Receive Date: 20060601
  Receipt Date: 20060329
  Transmission Date: 20061013
  Serious: No
  Sender: FDA-Public Use
  Company Number: 2006-BP-02384BP

PATIENT
  Age: 70 Year
  Sex: Female

DRUGS (6)
  1. SPIRIVA [Suspect]
     Indication: CHRONIC OBSTRUCTIVE PULMONARY DISEASE
     Dosage: 18 MG (18 MG, ONE), IH
     Route: 055
     Dates: start: 20051201
  2. EPERIL [Concomitant]
  3. PREVACID [Concomitant]
  4. ASMANEX TWISTHALER [Concomitant]
  5. PATANOL SYSTINE [Concomitant]
  6. PAREGORIC (PAREGORIC) [Concomitant]

REACTIONS (1)
  - DYSGEUSIA [None]
